FAERS Safety Report 13067800 (Version 1)
Quarter: 2016Q4

REPORT INFORMATION
  Report Type: Spontaneous
  Country: US (occurrence: US)
  Receive Date: 20161227
  Receipt Date: 20161227
  Transmission Date: 20170207
  Serious: No
  Sender: FDA-Public Use
  Company Number: None

PATIENT
  Sex: Male

DRUGS (1)
  1. HUMIRA [Suspect]
     Active Substance: ADALIMUMAB
     Indication: PSORIASIS
     Route: 058
     Dates: start: 20160823

REACTIONS (6)
  - Headache [None]
  - Poor quality sleep [None]
  - Sinus congestion [None]
  - Nasopharyngitis [None]
  - Weight increased [None]
  - Chest discomfort [None]
